FAERS Safety Report 21150030 (Version 1)
Quarter: 2022Q3

REPORT INFORMATION
  Report Type: Report from Study
  Country: KR (occurrence: KR)
  Receive Date: 20220729
  Receipt Date: 20220729
  Transmission Date: 20221027
  Serious: Yes (Other)
  Sender: FDA-Public Use
  Company Number: KR-NALPROPION PHARMACEUTICALS INC.-KR-2022CUR022427

PATIENT
  Age: 48 Year
  Sex: Female
  Weight: 77.8 kg

DRUGS (17)
  1. CONTRAVE [Suspect]
     Active Substance: BUPROPION HYDROCHLORIDE\NALTREXONE HYDROCHLORIDE
     Indication: Product used for unknown indication
     Dosage: 1 TABLET EVERY MORNING
     Route: 065
     Dates: start: 20210115, end: 20210121
  2. CONTRAVE [Suspect]
     Active Substance: BUPROPION HYDROCHLORIDE\NALTREXONE HYDROCHLORIDE
     Dosage: 1 TABLET EVERY MORNING, 1 TABLET EVERY EVENING
     Route: 065
     Dates: start: 20210122, end: 20210128
  3. CONTRAVE [Suspect]
     Active Substance: BUPROPION HYDROCHLORIDE\NALTREXONE HYDROCHLORIDE
     Dosage: 1 TABLET EVERY MORNING, 2 TABLET EVERY EVENING
     Route: 065
     Dates: start: 20210129, end: 20210204
  4. CONTRAVE [Suspect]
     Active Substance: BUPROPION HYDROCHLORIDE\NALTREXONE HYDROCHLORIDE
     Dosage: 2 TABLET EVERY MORNING, 2 TABLET EVERY EVENING
     Route: 065
     Dates: start: 20210205, end: 20210211
  5. CONTRAVE [Suspect]
     Active Substance: BUPROPION HYDROCHLORIDE\NALTREXONE HYDROCHLORIDE
     Dosage: 1 TABLET EVERY MORNING, 1 TABLET EVERY EVENING
     Route: 065
     Dates: start: 20210212, end: 20210512
  6. PREMINA [ESTROGENS CONJUGATED] [Concomitant]
     Indication: Menopausal disorder
     Dosage: 1TAB, ONCE A DAY
     Route: 048
     Dates: start: 20210115, end: 20210210
  7. D MAC [Concomitant]
     Indication: Nutritional supplementation
     Dosage: 1TAB, ONCE A DAY
     Route: 048
     Dates: start: 20210115, end: 20210115
  8. D MAC [Concomitant]
     Dosage: 1TAB, ONCE A DAY
     Route: 048
     Dates: start: 20210210, end: 20210210
  9. D MAC [Concomitant]
     Dosage: 1TAB, ONCE A DAY
     Route: 048
     Dates: start: 20210310, end: 20210310
  10. D MAC [Concomitant]
     Dosage: 1TAB, ONCE A DAY
     Route: 048
     Dates: start: 20210410, end: 20210410
  11. D MAC [Concomitant]
     Dosage: 1TAB, ONCE A DAY
     Route: 048
     Dates: start: 20210510, end: 20210510
  12. MACPERAN [METOCLOPRAMIDE] [Concomitant]
     Indication: Prophylaxis of nausea and vomiting
     Dosage: 3TAB/DAY (1TAB, 3 TIMES A DAY)
     Route: 048
     Dates: start: 20210115, end: 2021
  13. PREMINA [ESTROGENS CONJUGATED] [Concomitant]
     Indication: Menopausal disorder
     Dosage: 1TAB, ONCE A DAY
     Route: 048
     Dates: start: 20210210
  14. SERTACONAZOLE NITRATE [Concomitant]
     Active Substance: SERTACONAZOLE NITRATE
     Indication: Pelvic inflammatory disease
     Dosage: 1TAB, ONCE A DAY
     Route: 048
     Dates: start: 20210423, end: 20210423
  15. PROBIOTICS NOS [Concomitant]
     Active Substance: PROBIOTICS NOS
     Indication: Functional gastrointestinal disorder
     Dosage: 1CAP, ONCE A DAY
     Route: 048
     Dates: start: 20210423
  16. MESEXIN [Concomitant]
     Indication: Pelvic inflammatory disease
     Dosage: 3TAB/DAY (1TAB, 3 TIMES A DAY)
     Route: 048
     Dates: start: 20210423, end: 20210430
  17. K CAB [Concomitant]
     Indication: Gastrooesophageal reflux prophylaxis
     Dosage: 1TAB, ONCE A DAY
     Route: 048
     Dates: start: 20210423, end: 20210430

REACTIONS (1)
  - Pelvic inflammatory disease [Recovered/Resolved]

NARRATIVE: CASE EVENT DATE: 20210401
